FAERS Safety Report 8435833-8 (Version None)
Quarter: 2012Q2

REPORT INFORMATION
  Report Type: 
  Country: None (occurrence: None)
  Receive Date: 20120614
  Receipt Date: 20120530
  Transmission Date: 20120825
  Serious: Yes (Hospitalization)
  Sender: FDA-Public Use
  Company Number: DE-PFIZER INC-DE-WYE-H07002308

PATIENT
  Sex: Female
  Weight: 50 kg

DRUGS (12)
  1. ACETYLSALICYLIC ACID [Concomitant]
     Indication: HAEMODILUTION
     Dosage: 100 MG, 1X/DAY
  2. PANTOPRAZOLE [Concomitant]
     Indication: GASTRITIS PROPHYLAXIS
     Dosage: 40 MG, 2X/DAY
  3. SIROLIMUS [Suspect]
     Indication: PROPHYLAXIS AGAINST TRANSPLANT REJECTION
     Dosage: 2 MG, 1X/DAY
     Dates: start: 20080215, end: 20080428
  4. ZUTECTRA [Concomitant]
     Dosage: UNK
  5. CYCLOSPORINE [Concomitant]
     Indication: IMMUNOSUPPRESSION
     Dosage: 125 MG, 2X/DAY
  6. LAMIVUDINE [Concomitant]
     Indication: ANTIVIRAL PROPHYLAXIS
     Dosage: 100 MG, 1X/DAY
  7. PREDNISONE [Concomitant]
     Indication: IMMUNOSUPPRESSION
     Dosage: UNK
  8. ESTRADIOL [Concomitant]
     Indication: HORMONE THERAPY
     Dosage: 50 UG, 1X/DAY
  9. VENLAFAXINE [Concomitant]
     Indication: DEPRESSION
     Dosage: 150 MG, 1X/DAY
  10. MACROGOL [Concomitant]
     Indication: CONSTIPATION
     Dosage: 13.8 G, 2X/DAY
  11. NEXIUM [Concomitant]
     Indication: GASTRITIS PROPHYLAXIS
     Dosage: 40 MG, 1X/DAY
  12. URSO FALK [Concomitant]
     Indication: CHOLELITHIASIS
     Dosage: 500 MG, 3X/DAY

REACTIONS (1)
  - BILIARY ISCHAEMIA [None]
